FAERS Safety Report 9405326 (Version 1)
Quarter: 2013Q3

REPORT INFORMATION
  Report Type: Spontaneous
  Country: FR (occurrence: FR)
  Receive Date: 20130717
  Receipt Date: 20130717
  Transmission Date: 20140515
  Serious: Yes (Death, Hospitalization)
  Sender: FDA-Public Use
  Company Number: FR-JNJFOC-20130704326

PATIENT
  Age: 87 Year
  Sex: Male

DRUGS (29)
  1. CONTRAMAL [Suspect]
     Indication: MUSCULOSKELETAL CHEST PAIN
     Route: 048
     Dates: start: 20121121, end: 20121203
  2. CONTRAMAL [Suspect]
     Indication: PAIN
     Route: 048
     Dates: start: 20121108, end: 20121201
  3. OFLOCET [Concomitant]
     Indication: URINARY TRACT INFECTION
     Route: 065
     Dates: start: 20121031, end: 20121102
  4. OFLOCET [Concomitant]
     Indication: URINARY TRACT INFECTION
     Route: 065
  5. OFLOCET [Concomitant]
     Indication: LUNG INFECTION
     Route: 065
  6. OFLOCET [Concomitant]
     Indication: LUNG INFECTION
     Route: 065
     Dates: start: 20121031, end: 20121102
  7. CARDENSIEL [Concomitant]
     Indication: PRODUCT USED FOR UNKNOWN INDICATION
     Route: 048
     Dates: end: 20121025
  8. GLIBENCLAMIDE [Concomitant]
     Indication: DIABETES MELLITUS
     Route: 048
     Dates: end: 20121025
  9. ALLOPURINOL [Concomitant]
     Indication: PRODUCT USED FOR UNKNOWN INDICATION
     Route: 048
  10. ALDACTONE [Concomitant]
     Indication: PRODUCT USED FOR UNKNOWN INDICATION
     Route: 048
     Dates: end: 20121025
  11. DOLIPRANE [Concomitant]
     Indication: PRODUCT USED FOR UNKNOWN INDICATION
     Route: 065
  12. HEMIGOXINE [Concomitant]
     Indication: PRODUCT USED FOR UNKNOWN INDICATION
     Route: 065
     Dates: end: 20121023
  13. ACTRAPID [Concomitant]
     Indication: PRODUCT USED FOR UNKNOWN INDICATION
     Route: 058
     Dates: start: 20121025, end: 20121202
  14. LANTUS [Concomitant]
     Indication: PRODUCT USED FOR UNKNOWN INDICATION
     Route: 058
     Dates: start: 20121030, end: 20121202
  15. GLUCOSE MONOHYDRATE [Concomitant]
     Indication: PRODUCT USED FOR UNKNOWN INDICATION
     Route: 042
     Dates: start: 20121031, end: 20121205
  16. CLAMOXYL [Concomitant]
     Indication: SHOCK
     Route: 041
     Dates: start: 20121115, end: 20121130
  17. GENTAMICIN [Concomitant]
     Indication: SHOCK
     Route: 042
     Dates: start: 20121115, end: 20121121
  18. LASILIX [Concomitant]
     Indication: PRODUCT USED FOR UNKNOWN INDICATION
     Route: 048
     Dates: start: 20121026, end: 20121204
  19. KARDEGIC [Concomitant]
     Indication: PRODUCT USED FOR UNKNOWN INDICATION
     Route: 048
     Dates: end: 20121204
  20. LOVENOX [Concomitant]
     Indication: PRODUCT USED FOR UNKNOWN INDICATION
     Route: 058
     Dates: start: 20121102, end: 20121203
  21. AUGMENTIN [Concomitant]
     Indication: URINARY TRACT INFECTION
     Route: 065
     Dates: start: 20121031, end: 20121113
  22. AUGMENTIN [Concomitant]
     Indication: URINARY TRACT INFECTION
     Route: 065
  23. AUGMENTIN [Concomitant]
     Indication: LUNG INFECTION
     Route: 065
  24. AUGMENTIN [Concomitant]
     Indication: LUNG INFECTION
     Route: 065
     Dates: start: 20121031, end: 20121113
  25. ROXITHROMYCINE [Concomitant]
     Indication: INFLAMMATION
     Route: 065
     Dates: start: 20121103, end: 20121115
  26. TRANDOLAPRIL [Concomitant]
     Indication: PRODUCT USED FOR UNKNOWN INDICATION
     Route: 048
     Dates: end: 20121025
  27. MORPHINE [Concomitant]
     Indication: DYSPNOEA
     Route: 041
     Dates: start: 20121205
  28. ROCEPHIN [Concomitant]
     Indication: RASH MORBILLIFORM
     Route: 065
     Dates: start: 20121201, end: 20121202
  29. MIDAZOLAM [Concomitant]
     Indication: DYSPNOEA
     Route: 065
     Dates: start: 201212

REACTIONS (1)
  - Hypoglycaemia [Fatal]
